FAERS Safety Report 16846463 (Version 1)
Quarter: 2019Q3

REPORT INFORMATION
  Report Type: Report from Study
  Country: US (occurrence: US)
  Receive Date: 20190924
  Receipt Date: 20190924
  Transmission Date: 20191005
  Serious: Yes (Death, Other)
  Sender: FDA-Public Use
  Company Number: US-GLAXOSMITHKLINE-2019-TSO02777-US

PATIENT
  Age: 50 Year
  Sex: Male

DRUGS (1)
  1. NIRAPARIB [Suspect]
     Active Substance: NIRAPARIB
     Indication: PROSTATE CANCER
     Dosage: 300 MG, 8PM W/O FOOD
     Route: 048
     Dates: start: 20190814

REACTIONS (5)
  - Death [Fatal]
  - Rash [Recovered/Resolved]
  - Product use in unapproved indication [Unknown]
  - Weight increased [Unknown]
  - Red blood cell count decreased [Unknown]

NARRATIVE: CASE EVENT DATE: 201908
